FAERS Safety Report 10649153 (Version 1)
Quarter: 2014Q4

REPORT INFORMATION
  Report Type: Spontaneous
  Country: GB (occurrence: GB)
  Receive Date: 20141212
  Receipt Date: 20141212
  Transmission Date: 20150529
  Serious: Yes (Other)
  Sender: FDA-Public Use
  Company Number: GB-TEVA-527581ISR

PATIENT
  Sex: Female

DRUGS (4)
  1. FERROUS FUMARATE [Concomitant]
     Active Substance: FERROUS FUMARATE
     Route: 048
  2. GLUCOPHAGE [Concomitant]
     Active Substance: METFORMIN HYDROCHLORIDE
     Route: 048
  3. SIMVASTATIN. [Concomitant]
     Active Substance: SIMVASTATIN
     Route: 048
  4. DONEPEZIL [Suspect]
     Active Substance: DONEPEZIL
     Indication: DEMENTIA ALZHEIMER^S TYPE
     Route: 048
     Dates: start: 20141113, end: 20141114

REACTIONS (2)
  - Foaming at mouth [Recovered/Resolved]
  - Dyspnoea [Recovered/Resolved]
